FAERS Safety Report 7627447 (Version 3)
Quarter: 2016Q3

REPORT INFORMATION
  Report Type: Spontaneous
  Country: US (occurrence: US)
  Receive Date: 20101013
  Receipt Date: 20160825
  Transmission Date: 20161109
  Serious: Yes (Hospitalization)
  Sender: FDA-Public Use
  Company Number: US-ASTRAZENECA-2010SE18577

PATIENT
  Age: 27718 Day
  Sex: Male
  Weight: 71.2 kg

DRUGS (17)
  1. SYMBICORT [Suspect]
     Active Substance: BUDESONIDE\FORMOTEROL FUMARATE DIHYDRATE
     Indication: CHRONIC OBSTRUCTIVE PULMONARY DISEASE
     Dosage: 160/4.5 MICROGRAMS, 2 PUFFS,  TWICE A DAY, TWO TIMES A DAY
     Route: 055
  2. BABY ASPIRIN [Concomitant]
     Active Substance: ASPIRIN
     Route: 048
  3. ULTRAM [Concomitant]
     Active Substance: TRAMADOL HYDROCHLORIDE
     Indication: ARTHRITIS
     Route: 048
  4. A HIGH BLOOD PRESSURE PILL [Concomitant]
     Indication: HYPERTENSION
     Route: 048
  5. ACCOLATE [Concomitant]
     Active Substance: ZAFIRLUKAST
  6. NORVASC [Concomitant]
     Active Substance: AMLODIPINE BESYLATE
     Indication: HYPERTENSION
  7. SYMBICORT [Suspect]
     Active Substance: BUDESONIDE\FORMOTEROL FUMARATE DIHYDRATE
     Indication: CHRONIC OBSTRUCTIVE PULMONARY DISEASE
     Dosage: 160/4.5MCG, ONE PUFF IN THE MORNING AND TWO PUFFS IN THE EVENING
     Route: 055
  8. PULMICORT TURBUHALER [Suspect]
     Active Substance: BUDESONIDE
     Indication: CHRONIC OBSTRUCTIVE PULMONARY DISEASE
     Route: 055
  9. VENTOLIN [Concomitant]
     Active Substance: ALBUTEROL SULFATE
     Indication: CHRONIC OBSTRUCTIVE PULMONARY DISEASE
     Route: 007
  10. SYMBICORT [Suspect]
     Active Substance: BUDESONIDE\FORMOTEROL FUMARATE DIHYDRATE
     Indication: CHRONIC OBSTRUCTIVE PULMONARY DISEASE
     Dosage: 160/4.5 TOTAL 640 MCG FOR 2-3 DAYS, TWO TIMES A DAY
     Route: 055
  11. ALBUTEROL. [Concomitant]
     Active Substance: ALBUTEROL
     Dosage: TWO PUFFS TWO TIMES A DAY.
  12. SINGULAIR [Concomitant]
     Active Substance: MONTELUKAST SODIUM
     Indication: MULTIPLE ALLERGIES
     Route: 048
     Dates: start: 2006
  13. PREDNISONE. [Concomitant]
     Active Substance: PREDNISONE
     Indication: CHRONIC OBSTRUCTIVE PULMONARY DISEASE
     Route: 048
     Dates: start: 201604
  14. OXYGEN. [Concomitant]
     Active Substance: OXYGEN
     Dosage: 34 L CONT
     Route: 055
  15. SYMBICORT [Suspect]
     Active Substance: BUDESONIDE\FORMOTEROL FUMARATE DIHYDRATE
     Indication: CHRONIC OBSTRUCTIVE PULMONARY DISEASE
     Dosage: 1604.5 UG Q12H
     Route: 055
  16. PULMICORT TURBUHALER [Suspect]
     Active Substance: BUDESONIDE
     Indication: CHRONIC OBSTRUCTIVE PULMONARY DISEASE
     Dosage: 1MG/2ML
     Route: 055
     Dates: start: 201001
  17. CALCIUM [Concomitant]
     Active Substance: CALCIUM
     Route: 048

REACTIONS (12)
  - Dyspnoea exertional [Unknown]
  - Sinusitis [Recovered/Resolved]
  - Pneumonia [Recovered/Resolved]
  - Chest discomfort [Unknown]
  - Pyrexia [Unknown]
  - Epistaxis [Unknown]
  - Eye pain [Unknown]
  - Dyspnoea [Unknown]
  - Headache [Unknown]
  - Swelling face [Unknown]
  - Intentional product misuse [Not Recovered/Not Resolved]
  - Bronchitis [Recovered/Resolved]

NARRATIVE: CASE EVENT DATE: 20160607
